FAERS Safety Report 6259471-0 (Version None)
Quarter: 2009Q3

REPORT INFORMATION
  Report Type: 
  Country: None (occurrence: None)
  Receive Date: 20090708
  Receipt Date: 20090630
  Transmission Date: 20100115
  Serious: Yes (Hospitalization)
  Sender: FDA-Public Use
  Company Number: US-BIOGENIDEC-2008BI032405

PATIENT
  Age: 66 Year
  Sex: Male

DRUGS (1)
  1. AVONEX [Suspect]
     Indication: MULTIPLE SCLEROSIS
     Route: 030
     Dates: start: 19990101, end: 20081124

REACTIONS (5)
  - INCISION SITE HAEMATOMA [None]
  - LUNG DISORDER [None]
  - PROSTATE CANCER [None]
  - RENAL CELL CARCINOMA [None]
  - RENAL HAEMATOMA [None]
